FAERS Safety Report 18843711 (Version 1)
Quarter: 2021Q1

REPORT INFORMATION
  Report Type: Spontaneous
  Country: US (occurrence: US)
  Receive Date: 20210204
  Receipt Date: 20210204
  Transmission Date: 20210419
  Serious: Yes (Disabling)
  Sender: FDA-Public Use
  Company Number: None

PATIENT
  Age: 56 Year
  Sex: Female
  Weight: 58.5 kg

DRUGS (7)
  1. FLAGYL [Suspect]
     Active Substance: METRONIDAZOLE\METRONIDAZOLE HYDROCHLORIDE
     Indication: URINARY TRACT INFECTION
     Dates: start: 20200330, end: 20200330
  2. CLONAZEPAM. [Concomitant]
     Active Substance: CLONAZEPAM
  3. VITAMIN B12 [Concomitant]
     Active Substance: CYANOCOBALAMIN
  4. EFFEXOR [Concomitant]
     Active Substance: VENLAFAXINE HYDROCHLORIDE
  5. WELLBUTRIN [Concomitant]
     Active Substance: BUPROPION HYDROCHLORIDE
  6. MULTI?VITAMIN [Concomitant]
     Active Substance: .ALPHA.-TOCOPHEROL ACETATE, DL-\ASCORBIC ACID\CYANOCOBALAMIN\FLUORIDE ION\FOLIC ACID\NIACIN\PYRIDOXINE\RIBOFLAVIN\THIAMINE\VITAMIN A\VITAMIN D
  7. VIT D [Concomitant]
     Active Substance: VITAMIN D NOS

REACTIONS (25)
  - Fatigue [None]
  - Toxicity to various agents [None]
  - Feeling abnormal [None]
  - Central nervous system lesion [None]
  - Fall [None]
  - Pelvic pain [None]
  - Dyspnoea [None]
  - Cerebrovascular accident [None]
  - Speech disorder [None]
  - Dementia [None]
  - Tendon pain [None]
  - Visual field defect [None]
  - Bedridden [None]
  - Mental impairment [None]
  - Parosmia [None]
  - Serotonin syndrome [None]
  - Hypokinesia [None]
  - Asthenia [None]
  - Disturbance in attention [None]
  - Memory impairment [None]
  - Muscle spasms [None]
  - Thinking abnormal [None]
  - Gait inability [None]
  - Nervous system disorder [None]
  - Personality change [None]

NARRATIVE: CASE EVENT DATE: 20200330
